FAERS Safety Report 15927263 (Version 2)
Quarter: 2019Q1

REPORT INFORMATION
  Report Type: Report from Study
  Country: US (occurrence: US)
  Receive Date: 20190206
  Receipt Date: 20190306
  Transmission Date: 20190417
  Serious: Yes (Life-Threatening, Other)
  Sender: FDA-Public Use
  Company Number: US-ROCHE-2257383

PATIENT
  Age: 40 Year
  Sex: Female
  Weight: 83 kg

DRUGS (4)
  1. COBIMETINIB. [Suspect]
     Active Substance: COBIMETINIB
     Indication: CRANIOPHARYNGIOMA
     Dosage: ON DAYS 1 TO 21?LAST ADMINISTERED DATE: 01/JAN/2019
     Route: 048
     Dates: start: 20181228
  2. HYDROCORTISONE. [Concomitant]
     Active Substance: HYDROCORTISONE
     Dosage: 30 MG IN THE MORNING AND 20 MG IN THE AFTERNOON
     Route: 065
     Dates: start: 20190115
  3. VEMURAFENIB. [Suspect]
     Active Substance: VEMURAFENIB
     Indication: CRANIOPHARYNGIOMA
     Dosage: ON DAY 1 TO 28?LAST DOSE ADMINISTERED: 02/JAN/2019
     Route: 048
     Dates: start: 20181228
  4. HYDROCORTISONE. [Concomitant]
     Active Substance: HYDROCORTISONE
     Dosage: 15MG IN THE MORNING AND 5 MG IN THE AFTERNOON.
     Route: 065

REACTIONS (3)
  - Hyperglycaemia [Recovered/Resolved]
  - Hyponatraemia [Recovered/Resolved]
  - Alanine aminotransferase increased [Recovered/Resolved]

NARRATIVE: CASE EVENT DATE: 20190102
